FAERS Safety Report 4840107-8 (Version None)
Quarter: 2005Q4

REPORT INFORMATION
  Report Type: 
  Country: None (occurrence: None)
  Receive Date: 20051125
  Receipt Date: 20051116
  Transmission Date: 20060501
  Serious: Yes (Hospitalization)
  Sender: FDA-Public Use
  Company Number: 2005157271

PATIENT
  Age: 59 Year
  Sex: Female
  Weight: 81.6475 kg

DRUGS (11)
  1. BENADRYL [Suspect]
     Indication: PRURITUS
     Dosage: 2 TABLETS ONCE, ORAL
     Route: 048
     Dates: start: 20050101
  2. CORTISONE ACETATE [Suspect]
     Dosage: UNSPECIFIED, TOPICAL
     Route: 061
  3. OXYCODONE HYDROCHLORIDE AND ACETAMINOPHEN [Suspect]
     Indication: BACK PAIN
     Dosage: 7.5MG 1-2 Q 4HR
  4. CLONAZEPAM [Suspect]
     Indication: ANXIETY
     Dosage: AS NEEDED
     Dates: start: 19970101
  5. ASPIRIN [Concomitant]
  6. FUROSEMIDE [Concomitant]
  7. RABEPRAZOLE SODIUM [Concomitant]
  8. METHIMAZOLE [Concomitant]
  9. PAROXETINE HCL [Concomitant]
  10. SIMVASTATIN [Concomitant]
  11. QUETIAPINE FUMARATE [Concomitant]

REACTIONS (5)
  - ACCIDENTAL EXPOSURE [None]
  - BURNING SENSATION [None]
  - INCORRECT ROUTE OF DRUG ADMINISTRATION [None]
  - SENSORY DISTURBANCE [None]
  - WRONG TECHNIQUE IN DRUG USAGE PROCESS [None]
